FAERS Safety Report 21267582 (Version 1)
Quarter: 2022Q3

REPORT INFORMATION
  Report Type: Spontaneous
  Country: US (occurrence: US)
  Receive Date: 20220829
  Receipt Date: 20220829
  Transmission Date: 20221026
  Serious: No
  Sender: FDA-Public Use
  Company Number: US-PADAGIS-2022PAD00436

PATIENT

DRUGS (2)
  1. TRETINOIN [Suspect]
     Active Substance: TRETINOIN
     Indication: Acne
     Dosage: 025% ON NOSEAND FOREHEAD
     Route: 065
     Dates: start: 2021, end: 2022
  2. TRETINOIN [Suspect]
     Active Substance: TRETINOIN
     Dosage: 0.05% ON NOSE AND FOREHEAD SEVERAL TIMES A WEEK
     Route: 065
     Dates: start: 2022

REACTIONS (1)
  - Tendonitis [Not Recovered/Not Resolved]

NARRATIVE: CASE EVENT DATE: 20220201
